FAERS Safety Report 9398585 (Version 1)
Quarter: 2013Q3

REPORT INFORMATION
  Report Type: Spontaneous
  Country: US (occurrence: US)
  Receive Date: 20130712
  Receipt Date: 20130712
  Transmission Date: 20140515
  Serious: No
  Sender: FDA-Public Use
  Company Number: US-UPSHER-SMITH LABORATORIES, INC.-13002263

PATIENT
  Sex: Female

DRUGS (11)
  1. FORTICAL [Suspect]
     Indication: OSTEOPOROSIS
     Dosage: 200 IU, QD
     Route: 045
     Dates: start: 2010
  2. LEVOTHYROXINE [Concomitant]
     Dosage: UNK
  3. ATIVAN [Concomitant]
     Indication: ANXIETY
     Dosage: UNK
  4. TOPROL XL [Concomitant]
     Indication: HYPERTENSION
     Dosage: UNK
  5. LISINOPRIL [Concomitant]
     Indication: HYPERTENSION
     Dosage: UNK
  6. HYDROCHLOROTHIAZIDE [Concomitant]
     Indication: HYPERTENSION
     Dosage: UNK
  7. AMITRIPTYLENE [Concomitant]
     Dosage: UNK
  8. HMG COA REDUCTASE INHIBITORS [Concomitant]
     Dosage: UNK
  9. ANTACID                            /00018101/ [Concomitant]
     Dosage: UNK
  10. CALCIUM [Concomitant]
     Dosage: UNK
  11. VITAMIN D                          /00107901/ [Concomitant]
     Dosage: UNK

REACTIONS (1)
  - Drug ineffective [Not Recovered/Not Resolved]
